FAERS Safety Report 11166264 (Version 1)
Quarter: 2015Q2

REPORT INFORMATION
  Report Type: Spontaneous
  Country: IT (occurrence: IT)
  Receive Date: 20150605
  Receipt Date: 20150605
  Transmission Date: 20150821
  Serious: Yes (Hospitalization)
  Sender: FDA-Public Use
  Company Number: CHPA2015IT006740

PATIENT
  Age: 29 Year
  Sex: Female

DRUGS (1)
  1. IBUPROFEN. [Suspect]
     Active Substance: IBUPROFEN
     Indication: ANALGESIC THERAPY
     Dosage: 200 MG, QD
     Route: 048
     Dates: start: 20150217, end: 20150217

REACTIONS (1)
  - Oedema genital [Recovered/Resolved]

NARRATIVE: CASE EVENT DATE: 20150218
